FAERS Safety Report 16048782 (Version 11)
Quarter: 2020Q2

REPORT INFORMATION
  Report Type: Spontaneous
  Country: US (occurrence: US)
  Receive Date: 20190307
  Receipt Date: 20200407
  Transmission Date: 20200713
  Serious: Yes (Other)
  Sender: FDA-Public Use
  Company Number: US-SA-2019SA063709

PATIENT
  Age: 44 Year
  Sex: Female

DRUGS (3)
  1. KEVZARA [Suspect]
     Active Substance: SARILUMAB
     Dosage: 200 MG QOW
     Route: 058
     Dates: start: 2019
  2. KEVZARA [Suspect]
     Active Substance: SARILUMAB
     Indication: PRODUCT USED FOR UNKNOWN INDICATION
     Dosage: 200 MG, QOW
     Route: 058
     Dates: start: 201902, end: 2019
  3. KEVZARA [Suspect]
     Active Substance: SARILUMAB
     Dosage: 200 MG, QOW
     Route: 058

REACTIONS (18)
  - Rash pruritic [Unknown]
  - Viral infection [Unknown]
  - Hepatic enzyme increased [Unknown]
  - Arthropathy [Unknown]
  - Thermal burn [Unknown]
  - Influenza [Unknown]
  - Nasal congestion [Unknown]
  - Rheumatoid arthritis [Unknown]
  - Blood copper increased [Unknown]
  - Headache [Unknown]
  - Balance disorder [Unknown]
  - Injection site rash [Unknown]
  - Injection site warmth [Unknown]
  - Unevaluable event [Unknown]
  - Skin warm [Unknown]
  - Fall [Unknown]
  - Abdominal pain upper [Unknown]
  - Injection site pruritus [Unknown]

NARRATIVE: CASE EVENT DATE: 2019
